FAERS Safety Report 7822621-6 (Version None)
Quarter: 2011Q4

REPORT INFORMATION
  Report Type: 
  Country: None (occurrence: None)
  Receive Date: 20111018
  Receipt Date: 20111010
  Transmission Date: 20120403
  Serious: No
  Sender: FDA-Public Use
  Company Number: BR-US-EMD SERONO, INC.-7085183

PATIENT
  Sex: Female

DRUGS (4)
  1. MANTIDAN [Concomitant]
  2. BACLOFEN [Concomitant]
  3. REBIF [Suspect]
     Indication: MULTIPLE SCLEROSIS
     Dates: start: 20050323, end: 20110901
  4. SERTRALINE HYDROCHLORIDE [Concomitant]
     Indication: DEPRESSION

REACTIONS (2)
  - URINARY TRACT INFECTION [None]
  - HEPATIC ENZYME ABNORMAL [None]
